FAERS Safety Report 5342661-9 (Version None)
Quarter: 2007Q2

REPORT INFORMATION
  Report Type: 
  Country: None (occurrence: None)
  Receive Date: 20070601
  Receipt Date: 20070522
  Transmission Date: 20071010
  Serious: Yes (Other)
  Sender: FDA-Public Use
  Company Number: JP-PFIZER INC-2007035150

PATIENT
  Sex: Male

DRUGS (2)
  1. HALCION [Suspect]
     Route: 048
  2. DEPAS [Concomitant]
     Route: 048

REACTIONS (3)
  - HEADACHE [None]
  - HYPERTENSION [None]
  - NAUSEA [None]
